FAERS Safety Report 7724874-1 (Version None)
Quarter: 2011Q3

REPORT INFORMATION
  Report Type: 
  Country: None (occurrence: None)
  Receive Date: 20110901
  Receipt Date: 20110819
  Transmission Date: 20111222
  Serious: Yes (Hospitalization)
  Sender: FDA-Public Use
  Company Number: US-MYLANLABS-2011S1017560

PATIENT
  Age: 28 Year
  Sex: Male

DRUGS (13)
  1. CLOZAPINE [Suspect]
     Dosage: 125 MG/DAY
     Route: 065
  2. PERPHENAZINE [Concomitant]
     Indication: SCHIZOAFFECTIVE DISORDER
     Route: 065
  3. BENZTROPINE MESYLATE [Concomitant]
     Indication: SCHIZOAFFECTIVE DISORDER
     Route: 065
  4. KETOROLAC TROMETHAMINE [Concomitant]
     Indication: VIRAL INFECTION
     Route: 042
  5. LEVOFLOXACIN [Concomitant]
     Indication: URINARY TRACT INFECTION
     Dosage: 1-2 DOSES
     Route: 065
  6. MOXIFLOXACIN [Concomitant]
     Indication: RESPIRATORY TRACT INFECTION
     Route: 065
  7. DEPAKOTE [Concomitant]
     Indication: SCHIZOAFFECTIVE DISORDER
     Route: 065
  8. ACETAMINOPHEN [Concomitant]
     Indication: HEADACHE
     Route: 065
  9. AMOXI-CLAVULANICO [Concomitant]
     Indication: LOCALISED INFECTION
     Route: 065
  10. HALOPERIDOL [Concomitant]
     Indication: SCHIZOAFFECTIVE DISORDER
     Route: 065
  11. KETOROLAC TROMETHAMINE [Concomitant]
     Indication: URINARY TRACT INFECTION
     Route: 042
  12. CLOZAPINE [Suspect]
     Indication: SCHIZOAFFECTIVE DISORDER
     Dosage: 12.5 MG/DAY
     Route: 065
  13. LITHIUM CARBONATE [Concomitant]
     Indication: SCHIZOAFFECTIVE DISORDER
     Route: 065

REACTIONS (3)
  - RENAL FAILURE ACUTE [None]
  - TUBULOINTERSTITIAL NEPHRITIS [None]
  - HYPERSENSITIVITY [None]
